FAERS Safety Report 23376388 (Version 3)
Quarter: 2024Q2

REPORT INFORMATION
  Report Type: Spontaneous
  Country: JP (occurrence: JP)
  Receive Date: 20240108
  Receipt Date: 20240513
  Transmission Date: 20240716
  Serious: Yes (Hospitalization)
  Sender: FDA-Public Use
  Company Number: JP-AstraZeneca-CH-00535697A

PATIENT
  Age: 42 Year
  Sex: Male

DRUGS (1)
  1. ULTOMIRIS [Suspect]
     Active Substance: RAVULIZUMAB-CWVZ
     Indication: Paroxysmal nocturnal haemoglobinuria
     Dosage: UNK UNK, Q56
     Route: 041

REACTIONS (3)
  - Pyrexia [Recovered/Resolved]
  - Infection [Unknown]
  - Cough [Unknown]

NARRATIVE: CASE EVENT DATE: 20231227
